FAERS Safety Report 21856324 (Version 11)
Quarter: 2023Q2

REPORT INFORMATION
  Report Type: Report from Study
  Country: CO (occurrence: CO)
  Receive Date: 20230112
  Receipt Date: 20230412
  Transmission Date: 20230722
  Serious: Yes (Death, Life-Threatening, Hospitalization, Other)
  Sender: FDA-Public Use
  Company Number: CO-ABBVIE-4226399

PATIENT
  Age: 67 Year
  Sex: Female
  Weight: 60 kg

DRUGS (7)
  1. VENCLEXTA [Suspect]
     Active Substance: VENETOCLAX
     Indication: Acute myeloid leukaemia
     Dosage: LAST ADMIN DATE- 2023/FORM STRENGTH: 100 MG
     Route: 048
     Dates: start: 20230124
  2. VENCLEXTA [Suspect]
     Active Substance: VENETOCLAX
     Indication: Acute myeloid leukaemia
     Dosage: FORM STRENGTH: 100 MILLIGRAM/ LAST ADMIN DATE- FEB 2023
     Route: 048
     Dates: start: 20230215
  3. VENCLEXTA [Suspect]
     Active Substance: VENETOCLAX
     Indication: Acute myeloid leukaemia
     Dosage: FORM STRENGTH: 100 MG
     Route: 048
     Dates: start: 20221125, end: 20221201
  4. VENCLEXTA [Suspect]
     Active Substance: VENETOCLAX
     Indication: Acute myeloid leukaemia
     Dosage: LAST ADMINISTRATION DATE: FEB 2023/FORM STRENGTH: 100 MG
     Route: 048
     Dates: start: 20230206
  5. VENCLEXTA [Suspect]
     Active Substance: VENETOCLAX
     Indication: Acute myeloid leukaemia
     Dosage: FORM STRENGTH: 100 MG
     Route: 048
     Dates: start: 202302, end: 202302
  6. VENCLEXTA [Suspect]
     Active Substance: VENETOCLAX
     Indication: Acute myeloid leukaemia
     Dosage: FORM STRENGTH: 100 MG
     Route: 048
     Dates: start: 20230221, end: 20230301
  7. VENCLEXTA [Suspect]
     Active Substance: VENETOCLAX
     Indication: Acute myeloid leukaemia
     Dosage: LAST ADMIN DATE-JAN 2023/FORM STRENGTH: 100 MG
     Route: 048
     Dates: start: 20230116

REACTIONS (18)
  - Death [Fatal]
  - Platelet count decreased [Recovering/Resolving]
  - Condition aggravated [Not Recovered/Not Resolved]
  - Platelet count increased [Recovering/Resolving]
  - Cholecystitis [Not Recovered/Not Resolved]
  - Blood disorder [Recovering/Resolving]
  - Decreased appetite [Recovering/Resolving]
  - Thrombocytopenia [Recovered/Resolved]
  - Weight decreased [Recovering/Resolving]
  - Haemoglobin decreased [Recovering/Resolving]
  - Appendicitis [Recovering/Resolving]
  - Discouragement [Recovering/Resolving]
  - Thrombocytopenia [Recovered/Resolved]
  - Infection [Not Recovered/Not Resolved]
  - Pyrexia [Recovered/Resolved]
  - Thrombocytopenia [Recovering/Resolving]
  - Respiratory distress [Not Recovered/Not Resolved]
  - Transfusion [Unknown]

NARRATIVE: CASE EVENT DATE: 20221201
